FAERS Safety Report 4929566-X (Version None)
Quarter: 2006Q1

REPORT INFORMATION
  Report Type: 
  Country: None (occurrence: None)
  Receive Date: 20060223
  Receipt Date: 20060208
  Transmission Date: 20060701
  Serious: Yes (Other)
  Sender: FDA-Public Use
  Company Number: 8012772

PATIENT
  Age: 24 Year
  Sex: Female
  Weight: 63.5 kg

DRUGS (9)
  1. KEPPRA [Suspect]
     Indication: PARTIAL SEIZURES
     Dosage: 500 MG/D PO
     Route: 048
  2. LAMICTAL [Suspect]
     Indication: PARTIAL SEIZURES
     Dosage: 100 MG PO
     Route: 048
  3. LAMICTAL [Suspect]
     Indication: PARTIAL SEIZURES
     Dosage: 200 MG 2/D PO
     Route: 048
  4. SPIRONOLACTONE [Concomitant]
  5. THYROXINE SODIUM [Concomitant]
  6. MONTELUKAST SODIUM [Concomitant]
  7. LORATADINE [Concomitant]
  8. ORTHO TRI-CYCLEN [Concomitant]
  9. PANTOPRAZOLE [Concomitant]

REACTIONS (4)
  - CONVULSION [None]
  - DRUG INEFFECTIVE [None]
  - PHARMACEUTICAL PRODUCT COMPLAINT [None]
  - WRONG TECHNIQUE IN DRUG USAGE PROCESS [None]
